FAERS Safety Report 7559682-8 (Version None)
Quarter: 2011Q2

REPORT INFORMATION
  Report Type: 
  Country: None (occurrence: None)
  Receive Date: 20110621
  Receipt Date: 20110608
  Transmission Date: 20111010
  Serious: Yes (Hospitalization, Other)
  Sender: FDA-Public Use
  Company Number: US-CELGENEUS-028-21880-11061134

PATIENT
  Sex: Female

DRUGS (5)
  1. REVLIMID [Suspect]
     Indication: MULTIPLE MYELOMA
     Dosage: 5 MILLIGRAM
     Route: 048
     Dates: start: 20101229, end: 20110101
  2. DEXAMETHASONE [Concomitant]
     Route: 065
  3. ASPIRIN [Concomitant]
     Route: 065
  4. AMLODIPINE [Concomitant]
     Route: 065
  5. HYDROMORPHONE HCL [Concomitant]
     Route: 065

REACTIONS (2)
  - FLUID RETENTION [None]
  - LOWER RESPIRATORY TRACT INFECTION [None]
